FAERS Safety Report 9390340 (Version 1)
Quarter: 2013Q3

REPORT INFORMATION
  Report Type: Spontaneous
  Country: US (occurrence: US)
  Receive Date: 20130709
  Receipt Date: 20130709
  Transmission Date: 20140515
  Serious: Yes (Other)
  Sender: FDA-Public Use
  Company Number: US-JNJFOC-20130701599

PATIENT
  Age: 69 Year
  Sex: Female
  Weight: 77 kg

DRUGS (19)
  1. IBUPROFEN [Suspect]
     Indication: PRODUCT USED FOR UNKNOWN INDICATION
     Route: 065
  2. HUMIRA [Suspect]
     Indication: RHEUMATOID ARTHRITIS
     Dosage: FOR 85 DAYS
     Dates: start: 20130104, end: 20130329
  3. LIPITOR [Suspect]
     Indication: BLOOD CHOLESTEROL INCREASED
  4. METHOTREXATE SODIUM [Suspect]
     Indication: RHEUMATOID ARTHRITIS
     Dates: start: 201304
  5. FOLIC ACID [Concomitant]
     Indication: LIVER DISORDER
  6. FOLIC ACID [Concomitant]
     Indication: LIVER DISORDER
  7. FOLIC ACID [Concomitant]
     Indication: VITAMIN SUPPLEMENTATION
  8. FOLIC ACID [Concomitant]
     Indication: VITAMIN SUPPLEMENTATION
  9. TRAMADOL HYDROCHLORIDE [Concomitant]
     Indication: PAIN
     Dosage: 2-3 A DAY, AS NEEDED
  10. TRAMADOL HYDROCHLORIDE [Concomitant]
     Indication: PAIN
  11. TRAMADOL HYDROCHLORIDE [Concomitant]
     Indication: RHEUMATOID ARTHRITIS
     Dosage: 2-3 A DAY, AS NEEDED
  12. TRAMADOL HYDROCHLORIDE [Concomitant]
     Indication: RHEUMATOID ARTHRITIS
  13. PREDNISONE [Concomitant]
     Indication: RHEUMATOID ARTHRITIS
  14. PREDNISONE [Concomitant]
     Indication: RHEUMATOID ARTHRITIS
  15. KLOR-CON [Concomitant]
     Indication: PRODUCT USED FOR UNKNOWN INDICATION
  16. ATENOLOL [Concomitant]
     Indication: HYPERTENSION
  17. OMEPRAZOLE [Concomitant]
     Indication: GASTROOESOPHAGEAL REFLUX DISEASE
  18. BABY ASPIRIN [Concomitant]
     Indication: PRODUCT USED FOR UNKNOWN INDICATION
  19. FUROSEMIDE [Concomitant]
     Indication: FLUID IMBALANCE

REACTIONS (9)
  - Rheumatoid arthritis [Unknown]
  - Hepatic enzyme increased [Unknown]
  - Blood pressure increased [Unknown]
  - Injection site bruising [Unknown]
  - Headache [Unknown]
  - Pain in extremity [Unknown]
  - Back pain [Unknown]
  - Arthralgia [Unknown]
  - Hot flush [Unknown]
